FAERS Safety Report 5153676-8 (Version None)
Quarter: 2006Q4

REPORT INFORMATION
  Report Type: 
  Country: None (occurrence: None)
  Receive Date: 20061114
  Receipt Date: 20061026
  Transmission Date: 20070319
  Serious: Yes (Hospitalization)
  Sender: FDA-Public Use
  Company Number: 232022

PATIENT
  Age: 31 Year
  Sex: Male
  Weight: 81 kg

DRUGS (5)
  1. AVASTIN [Suspect]
     Indication: COLON CANCER
     Dosage: SEE IMAGE, INTRAVENOUS
     Route: 042
     Dates: start: 20051025, end: 20060421
  2. AVASTIN [Suspect]
     Indication: COLON CANCER
     Dosage: SEE IMAGE, INTRAVENOUS
     Route: 042
     Dates: start: 20060509
  3. OXALIPLATIN [Suspect]
     Indication: COLON CANCER
     Dosage: 170 MG, Q2W, INTRAVENOUS
     Route: 042
     Dates: start: 20051025, end: 20060404
  4. LEUCOVORIN CALCIUM [Suspect]
     Indication: COLON CANCER
     Dosage: 800 MG, Q2W, INTRAVENOUS
     Route: 042
     Dates: start: 20051025, end: 20060421
  5. FLUOROURACIL [Suspect]
     Indication: COLON CANCER
     Dosage: 400 MG, IV BOLUS
     Route: 040
     Dates: start: 20051025, end: 20060421

REACTIONS (2)
  - PERINEAL ABSCESS [None]
  - THERAPY NON-RESPONDER [None]
